FAERS Safety Report 19767663 (Version 1)
Quarter: 2021Q3

REPORT INFORMATION
  Report Type: Spontaneous
  Country: US (occurrence: US)
  Receive Date: 20210830
  Receipt Date: 20210830
  Transmission Date: 20211014
  Serious: No
  Sender: FDA-Public Use
  Company Number: None

PATIENT
  Age: 25 Year
  Sex: Female

DRUGS (1)
  1. MIRENA [Suspect]
     Active Substance: LEVONORGESTREL
     Indication: CONTRACEPTION
     Dates: end: 20200830

REACTIONS (4)
  - Device breakage [None]
  - Pelvic discomfort [None]
  - Device dislocation [None]
  - Muscle spasms [None]

NARRATIVE: CASE EVENT DATE: 20210830
